FAERS Safety Report 7981506-5 (Version None)
Quarter: 2011Q4

REPORT INFORMATION
  Report Type: 
  Country: None (occurrence: None)
  Receive Date: 20111213
  Receipt Date: 20111201
  Transmission Date: 20120403
  Serious: Yes (Other)
  Sender: FDA-Public Use
  Company Number: TPA2011A08152

PATIENT
  Age: 60 Year
  Sex: Male

DRUGS (1)
  1. ACTOS [Suspect]

REACTIONS (1)
  - BLADDER CANCER [None]
